FAERS Safety Report 10563912 (Version 1)
Quarter: 2014Q4

REPORT INFORMATION
  Report Type: Spontaneous
  Country: FR (occurrence: FR)
  Receive Date: 20141104
  Receipt Date: 20141104
  Transmission Date: 20150529
  Serious: Yes (Other)
  Sender: FDA-Public Use
  Company Number: FR-ACTAVIS-2014-23506

PATIENT
  Age: 44 Year
  Sex: Male

DRUGS (7)
  1. QUETIAPINE (UNKNOWN) [Suspect]
     Active Substance: QUETIAPINE
     Dosage: 150 MG, DAILY
     Route: 065
  2. CYAMEMAZINE [Suspect]
     Active Substance: CYAMEMAZINE
     Indication: SCHIZOPHRENIA
     Dosage: 200 MG, DAILY
     Route: 065
  3. ESTAZOLAM. [Concomitant]
     Active Substance: ESTAZOLAM
     Indication: SCHIZOPHRENIA
     Dosage: 2 MG, DAILY
     Route: 065
  4. QUETIAPINE (UNKNOWN) [Suspect]
     Active Substance: QUETIAPINE
     Indication: SCHIZOPHRENIA
     Dosage: 300 MG, DAILY
     Route: 065
  5. TROPATEPINE [Suspect]
     Active Substance: TROPATEPINE
     Indication: PRODUCT USED FOR UNKNOWN INDICATION
     Route: 065
  6. ALPRAZOLAM. [Concomitant]
     Active Substance: ALPRAZOLAM
     Indication: SCHIZOPHRENIA
     Dosage: 0.75 MG, DAILY
     Route: 065
  7. DIAZEPAM. [Concomitant]
     Active Substance: DIAZEPAM
     Indication: SCHIZOPHRENIA
     Dosage: 30 MG, DAILY
     Route: 065

REACTIONS (4)
  - Necrotising colitis [Unknown]
  - Septic shock [Unknown]
  - Bacterial translocation [Unknown]
  - Hypovolaemic shock [Unknown]
